FAERS Safety Report 5397636-0 (Version None)
Quarter: 2007Q3

REPORT INFORMATION
  Report Type: 
  Country: None (occurrence: None)
  Receive Date: 20070723
  Receipt Date: 20070723
  Transmission Date: 20080115
  Serious: Yes (Death)
  Sender: FDA-Public Use
  Company Number: None

PATIENT
  Age: 33 Year
  Sex: Female
  Weight: 68.0396 kg

DRUGS (8)
  1. STRATTERA [Suspect]
     Indication: BIPOLAR DISORDER
     Dosage: MAY 1, 2007 60 MG QD PO MAY 16, 2007 80 MG QD PO
     Route: 048
     Dates: start: 20070501, end: 20070625
  2. ZOLOFT [Concomitant]
  3. LEXAPROL [Concomitant]
  4. CELEXA [Concomitant]
  5. ABILIFY [Concomitant]
  6. GEODON [Concomitant]
  7. WELLBUTRIN [Concomitant]
  8. LAMICTAL [Concomitant]

REACTIONS (2)
  - COMPLETED SUICIDE [None]
  - DRUG INTOLERANCE [None]
